FAERS Safety Report 13042566 (Version 1)
Quarter: 2016Q4

REPORT INFORMATION
  Report Type: Spontaneous
  Country: GT (occurrence: GT)
  Receive Date: 20161219
  Receipt Date: 20161219
  Transmission Date: 20170207
  Serious: Yes (Hospitalization)
  Sender: FDA-Public Use
  Company Number: GT-INSYS THERAPEUTICS, INC-INS201612-000792

PATIENT
  Age: 66 Year
  Sex: Female

DRUGS (4)
  1. LORAZEPAM. [Concomitant]
     Active Substance: LORAZEPAM
  2. HALOPERIDOL. [Suspect]
     Active Substance: HALOPERIDOL
  3. FENTANYL. [Suspect]
     Active Substance: FENTANYL
     Indication: SEDATION
  4. DEXMEDETOMIDINE. [Suspect]
     Active Substance: DEXMEDETOMIDINE

REACTIONS (1)
  - Serotonin syndrome [Recovering/Resolving]
